FAERS Safety Report 17567435 (Version 1)
Quarter: 2020Q1

REPORT INFORMATION
  Report Type: Spontaneous
  Country: CO (occurrence: CO)
  Receive Date: 20200320
  Receipt Date: 20200320
  Transmission Date: 20200409
  Serious: Yes (Other)
  Sender: FDA-Public Use
  Company Number: CO-PFIZER INC-2019041069

PATIENT
  Age: 53 Year
  Sex: Female

DRUGS (1)
  1. REAMPLA [Suspect]
     Active Substance: PALBOCICLIB
     Indication: BREAST CANCER METASTATIC
     Dosage: 125 MG, UNK
     Route: 048
     Dates: start: 20190121

REACTIONS (4)
  - Thyroid cancer [Unknown]
  - Bone pain [Unknown]
  - Second primary malignancy [Unknown]
  - Malaise [Unknown]

NARRATIVE: CASE EVENT DATE: 201901
